FAERS Safety Report 7527393-0 (Version None)
Quarter: 2011Q2

REPORT INFORMATION
  Report Type: 
  Country: None (occurrence: None)
  Receive Date: 20110603
  Receipt Date: 20110513
  Transmission Date: 20111010
  Serious: Yes (Other)
  Sender: FDA-Public Use
  Company Number: JPI-P-015081

PATIENT
  Age: 25 Year
  Sex: Female

DRUGS (4)
  1. FERROUS SULFATE TAB [Concomitant]
  2. ARMODAFINIL [Concomitant]
  3. XYREM [Suspect]
     Indication: CATAPLEXY
     Dosage: 4.5 GM (2.25 GM,2 IN 1 D), ORAL
     Route: 048
     Dates: start: 20110318, end: 20110101
  4. BUSPIRONE HCL [Concomitant]

REACTIONS (2)
  - MIGRAINE [None]
  - CSF PRESSURE INCREASED [None]
